FAERS Safety Report 4768147-8 (Version None)
Quarter: 2005Q3

REPORT INFORMATION
  Report Type: 
  Country: None (occurrence: None)
  Receive Date: 20050912
  Receipt Date: 20050912
  Transmission Date: 20060218
  Serious: No
  Sender: FDA-Public Use
  Company Number: None

PATIENT
  Age: 53 Year
  Sex: Female
  Weight: 78.9259 kg

DRUGS (13)
  1. ZOSYN [Suspect]
     Indication: MASTOIDITIS
     Dosage: 3.375 G Q 6 H IV
     Route: 042
     Dates: start: 20050830, end: 20050907
  2. FOLIC ACID [Concomitant]
  3. MALIC ACID [Concomitant]
  4. MAGNESIUM [Concomitant]
  5. VIT B12 [Concomitant]
  6. PREVACID [Concomitant]
  7. PROZAC [Concomitant]
  8. ALPROZOM [Concomitant]
  9. VIT C WITH ROSEHIPS [Concomitant]
  10. ZANAFLEX [Concomitant]
  11. KLONOPIN [Concomitant]
  12. VICODIN [Concomitant]
  13. MULTIVITS [Concomitant]

REACTIONS (2)
  - FORMICATION [None]
  - PARAESTHESIA [None]
